FAERS Safety Report 9819582 (Version 1)
Quarter: 2014Q1

REPORT INFORMATION
  Report Type: Spontaneous
  Country: US (occurrence: US)
  Receive Date: 20140115
  Receipt Date: 20140115
  Transmission Date: 20141002
  Serious: Yes (Hospitalization, Other)
  Sender: FDA-Public Use
  Company Number: US-ELI_LILLY_AND_COMPANY-US201401001206

PATIENT
  Sex: Female

DRUGS (1)
  1. HUMALOG LISPRO [Suspect]
     Indication: TYPE 2 DIABETES MELLITUS
     Dosage: 3 U, WITH MEALS
     Route: 065

REACTIONS (11)
  - Myocardial ischaemia [Unknown]
  - Hypoglycaemic unconsciousness [Recovered/Resolved]
  - Memory impairment [Unknown]
  - Visual impairment [Not Recovered/Not Resolved]
  - Cataract [Unknown]
  - Blood glucose fluctuation [Unknown]
  - Cardiac disorder [Unknown]
  - Anxiety [Unknown]
  - Depression [Unknown]
  - Amnesia [Unknown]
  - Blood glucose abnormal [Unknown]
